FAERS Safety Report 14032259 (Version 1)
Quarter: 2017Q4

REPORT INFORMATION
  Report Type: Spontaneous
  Country: BR (occurrence: BR)
  Receive Date: 20171002
  Receipt Date: 20171002
  Transmission Date: 20180321
  Serious: Yes (Hospitalization)
  Sender: FDA-Public Use
  Company Number: BR-PFIZER INC-2017420934

PATIENT
  Age: 69 Year
  Sex: Male

DRUGS (4)
  1. TRIFLEX /02118501/ [Concomitant]
     Dosage: UNK
  2. CENTRUM SENIOR [Concomitant]
     Dosage: UNK
  3. FRONTAL XR [Suspect]
     Active Substance: ALPRAZOLAM
     Indication: EMOTIONAL DISORDER
     Dosage: 0.5 MG, ONCE IN THE MORNING
  4. FRONTAL XR [Suspect]
     Active Substance: ALPRAZOLAM
     Indication: HYPERTENSION

REACTIONS (3)
  - Cardiac disorder [Recovered/Resolved]
  - Feeling abnormal [Recovered/Resolved]
  - Pain in extremity [Recovered/Resolved]

NARRATIVE: CASE EVENT DATE: 20170511
